FAERS Safety Report 10102493 (Version 2)
Quarter: 2014Q2

REPORT INFORMATION
  Report Type: Other
  Country: US (occurrence: US)
  Receive Date: 20140424
  Receipt Date: 20140613
  Transmission Date: 20141212
  Serious: Yes (Other)
  Sender: FDA-Public Use
  Company Number: US-GSKPPD-2014GSK000249

PATIENT
  Age: 52 Year
  Sex: Female
  Weight: 112.59 kg

DRUGS (3)
  1. AVANDIA [Suspect]
     Indication: DIABETES MELLITUS
     Route: 048
     Dates: start: 20020809, end: 20050216
  2. ATENOLOL [Concomitant]
  3. ASPIRIN [Concomitant]

REACTIONS (1)
  - Myocardial infarction [Recovered/Resolved]
